FAERS Safety Report 10176256 (Version 1)
Quarter: 2014Q2

REPORT INFORMATION
  Report Type: Spontaneous
  Country: US (occurrence: US)
  Receive Date: 20140516
  Receipt Date: 20140516
  Transmission Date: 20141212
  Serious: Yes (Other)
  Sender: FDA-Public Use
  Company Number: US-PFIZER INC-2014134132

PATIENT
  Age: 48 Year
  Sex: Male
  Weight: 124.72 kg

DRUGS (12)
  1. LYRICA [Suspect]
     Indication: NEURALGIA
     Dosage: 100 MG, 3X/DAY
     Dates: start: 2013
  2. PRAVASTATIN [Concomitant]
     Indication: BLOOD CHOLESTEROL ABNORMAL
     Dosage: 40 MG, DAILY
  3. ALLOPURINOL [Concomitant]
     Indication: NEPHROLITHIASIS
     Dosage: 300 MG, 2X/DAY
  4. PLAQUENIL [Concomitant]
     Indication: ARTHRITIS
     Dosage: 200 MG, 2X/DAY
  5. PLETAL [Concomitant]
     Indication: POOR PERIPHERAL CIRCULATION
     Dosage: 100 MG, 2X/DAY
  6. PLETAL [Concomitant]
     Indication: INFLAMMATION
  7. FENOFIBRATE [Concomitant]
     Indication: HIGH DENSITY LIPOPROTEIN DECREASED
     Dosage: 150 MG, DAILY
  8. FENOFIBRATE [Concomitant]
     Indication: BLOOD TRIGLYCERIDES INCREASED
  9. METFORMIN [Concomitant]
     Indication: DIABETES MELLITUS
     Dosage: 500 MG, 4X/DAY
  10. HYDROCODONE [Concomitant]
     Indication: PAIN
     Dosage: 10 MG, 4X/DAY
  11. TOPAMAX [Concomitant]
     Indication: NEURALGIA
     Dosage: 200 MG, 2X/DAY
  12. TOPAMAX [Concomitant]
     Indication: WEIGHT DECREASED

REACTIONS (1)
  - Hypertension [Unknown]
